FAERS Safety Report 25784420 (Version 1)
Quarter: 2025Q3

REPORT INFORMATION
  Report Type: Spontaneous
  Country: US (occurrence: US)
  Receive Date: 20250910
  Receipt Date: 20250910
  Transmission Date: 20251020
  Serious: Yes (Hospitalization, Other)
  Sender: AUROBINDO
  Company Number: US-MLMSERVICE-20250821-PI622077-00029-1

PATIENT
  Age: 16 Year
  Sex: Male
  Weight: 50.3 kg

DRUGS (6)
  1. ACETAMINOPHEN [Suspect]
     Active Substance: ACETAMINOPHEN
     Indication: Cough
     Route: 048
  2. ACETAMINOPHEN [Suspect]
     Active Substance: ACETAMINOPHEN
     Indication: Pyrexia
     Route: 048
  3. ACETAMINOPHEN [Suspect]
     Active Substance: ACETAMINOPHEN
     Indication: Chills
  4. IBUPROFEN [Concomitant]
     Active Substance: IBUPROFEN
     Indication: Cough
     Route: 065
  5. IBUPROFEN [Concomitant]
     Active Substance: IBUPROFEN
     Indication: Pyrexia
  6. IBUPROFEN [Concomitant]
     Active Substance: IBUPROFEN
     Indication: Chills

REACTIONS (2)
  - Drug-induced liver injury [Recovered/Resolved]
  - Toxicity to various agents [Unknown]
